FAERS Safety Report 5377031-0 (Version None)
Quarter: 2007Q2

REPORT INFORMATION
  Report Type: 
  Country: None (occurrence: None)
  Receive Date: 20070628
  Receipt Date: 20070628
  Transmission Date: 20071010
  Serious: Yes (Hospitalization)
  Sender: FDA-Public Use
  Company Number: None

PATIENT
  Age: 68 Year
  Sex: Male

DRUGS (1)
  1. VANCOMYCIN HCL [Suspect]
     Dosage: 1000MG EVERY DAY IV
     Route: 042
     Dates: start: 20070607, end: 20070618

REACTIONS (2)
  - CLOSTRIDIUM DIFFICILE COLITIS [None]
  - SEPSIS [None]
